FAERS Safety Report 4454088-2 (Version None)
Quarter: 2004Q3

REPORT INFORMATION
  Report Type: 
  Country: None (occurrence: None)
  Receive Date: 20040902
  Receipt Date: 20040601
  Transmission Date: 20050211
  Serious: No
  Sender: FDA-Public Use
  Company Number: 200418135BWH

PATIENT
  Age: 68 Year
  Sex: Male
  Weight: 74.8435 kg

DRUGS (5)
  1. LEVITRA [Suspect]
     Indication: ERECTILE DYSFUNCTION
     Dosage: 20 MG, PRN, ORAL
     Route: 048
     Dates: start: 20040531
  2. ATENOLOL [Concomitant]
  3. MAXZIDE [Concomitant]
  4. LOVASTATIN [Concomitant]
  5. VIAGRA [Concomitant]

REACTIONS (2)
  - CYANOPSIA [None]
  - ERECTILE DYSFUNCTION [None]
